FAERS Safety Report 10993000 (Version 1)
Quarter: 2015Q2

REPORT INFORMATION
  Report Type: Spontaneous
  Country: TR (occurrence: TR)
  Receive Date: 20150406
  Receipt Date: 20150406
  Transmission Date: 20150821
  Serious: Yes (Hospitalization)
  Sender: FDA-Public Use
  Company Number: TR-MYLANLABS-2015M1010841

PATIENT

DRUGS (9)
  1. TRAMADOL [Interacting]
     Active Substance: TRAMADOL
     Dosage: 200 MG/DAY FOR 10Y
     Route: 048
  2. ISOSORBIDE MONONITRATE. [Concomitant]
     Active Substance: ISOSORBIDE MONONITRATE
     Dosage: 60 MG/DAY
     Route: 065
  3. RAMIPRIL. [Concomitant]
     Active Substance: RAMIPRIL
     Dosage: 5 MG/DAY
     Route: 065
  4. DEXKETOPROFEN [Concomitant]
     Active Substance: DEXKETOPROFEN
     Dosage: 25 MG/DAY
     Route: 065
  5. ALPRAZOLAM. [Interacting]
     Active Substance: ALPRAZOLAM
     Dosage: 1 MG/DAY
     Route: 048
  6. AMLODIPINE [Concomitant]
     Active Substance: AMLODIPINE BESYLATE
     Dosage: 10 MG/DAY
     Route: 065
  7. TRAMADOL [Suspect]
     Active Substance: TRAMADOL
     Dosage: 400MG
     Route: 048
  8. ASPIRIN                            /00002701/ [Concomitant]
     Active Substance: ASPIRIN
     Dosage: 100 MG/DAY
     Route: 065
  9. ALPRAZOLAM. [Interacting]
     Active Substance: ALPRAZOLAM
     Indication: INSOMNIA
     Dosage: 3MG
     Route: 048

REACTIONS (3)
  - Mental status changes [Recovered/Resolved]
  - Drug interaction [Recovered/Resolved]
  - Acute kidney injury [Recovered/Resolved]
